FAERS Safety Report 8127456-5 (Version None)
Quarter: 2012Q1

REPORT INFORMATION
  Report Type: 
  Country: None (occurrence: None)
  Receive Date: 20120210
  Receipt Date: 20120208
  Transmission Date: 20120608
  Serious: Yes (Hospitalization)
  Sender: FDA-Public Use
  Company Number: US-AMGEN-USASP2011049222

PATIENT
  Age: 56 Year
  Sex: Female

DRUGS (2)
  1. ENBREL [Suspect]
     Indication: PSORIASIS
     Dosage: 50 MG, 2 TIMES/WK
     Dates: start: 20110101
  2. ENBREL [Suspect]
     Dosage: 50 MG, 2 TIMES/WK
     Dates: start: 20110301, end: 20110701

REACTIONS (6)
  - OPEN WOUND [None]
  - SINUSITIS [None]
  - PSORIASIS [None]
  - STAPHYLOCOCCAL INFECTION [None]
  - CELLULITIS [None]
  - LIMB INJURY [None]
